FAERS Safety Report 4390467-X (Version None)
Quarter: 2004Q3

REPORT INFORMATION
  Report Type: 
  Country: None (occurrence: None)
  Receive Date: 20040701
  Receipt Date: 20040701
  Transmission Date: 20050211
  Serious: Yes (Life-Threatening, Hospitalization)
  Sender: FDA-Public Use
  Company Number: None

PATIENT
  Age: 57 Year
  Sex: Female
  Weight: 54.4316 kg

DRUGS (1)
  1. ACTIQ [Suspect]
     Indication: PAIN
     Dosage: 4-10 OER SUBLINGUAL
     Route: 060
     Dates: start: 20030501, end: 20040529

REACTIONS (3)
  - FEELING ABNORMAL [None]
  - PAIN [None]
  - TOOTH DISORDER [None]
